FAERS Safety Report 6517362-1 (Version None)
Quarter: 2009Q4

REPORT INFORMATION
  Report Type: 
  Country: None (occurrence: None)
  Receive Date: 20091223
  Receipt Date: 20091209
  Transmission Date: 20100525
  Serious: Yes (Death, Other)
  Sender: FDA-Public Use
  Company Number: JP-PFIZER INC-2009308916

PATIENT
  Age: 40 Year
  Sex: Male
  Weight: 63 kg

DRUGS (2)
  1. METHYLPREDNISOLONE AND METHYLPREDNISOLONE ACETATE AND METHYLPREDNISOLO [Suspect]
     Indication: INTERSTITIAL LUNG DISEASE
     Dosage: 1 G
     Route: 042
  2. PREDNISOLONE [Concomitant]
     Dosage: 60 MG, UNK

REACTIONS (2)
  - PNEUMOTHORAX [None]
  - RESPIRATORY FAILURE [None]
